FAERS Safety Report 9228226 (Version 1)
Quarter: 2013Q2

REPORT INFORMATION
  Report Type: Spontaneous
  Country: FR (occurrence: FR)
  Receive Date: 20130412
  Receipt Date: 20130412
  Transmission Date: 20140414
  Serious: Yes (Death, Hospitalization)
  Sender: FDA-Public Use
  Company Number: FR-JNJFOC-20130401584

PATIENT
  Age: 64 Year
  Sex: Male

DRUGS (4)
  1. ZYTIGA [Suspect]
     Indication: PROSTATE CANCER METASTATIC
     Dosage: 250 MG X4= 1000MG PER DAY.
     Route: 048
     Dates: start: 20121123, end: 20121211
  2. CORTANCYL [Suspect]
     Indication: PROSTATE CANCER METASTATIC
     Route: 048
     Dates: start: 20121123
  3. COZAAR [Concomitant]
     Indication: HYPERTENSION
     Route: 065
  4. MOPRAL [Concomitant]
     Route: 065

REACTIONS (5)
  - Hepatitis [Fatal]
  - Abdominal pain [Unknown]
  - Hepatomegaly [Unknown]
  - Anuria [Unknown]
  - Pyrexia [Recovered/Resolved]
